FAERS Safety Report 16154879 (Version 1)
Quarter: 2019Q2

REPORT INFORMATION
  Report Type: Spontaneous
  Country: US (occurrence: US)
  Receive Date: 20190403
  Receipt Date: 20190403
  Transmission Date: 20190711
  Serious: Yes (Death, Other)
  Sender: FDA-Public Use
  Company Number: US-009507513-1903USA013315

PATIENT
  Age: 25 Year
  Sex: Female
  Weight: 54.42 kg

DRUGS (11)
  1. AZITHROMYCIN ANHYDROUS. [Concomitant]
     Active Substance: AZITHROMYCIN ANHYDROUS
  2. HYDROCODONE [Concomitant]
     Active Substance: HYDROCODONE
  3. MORPHINE [Concomitant]
     Active Substance: MORPHINE
  4. LACTULOSE. [Concomitant]
     Active Substance: LACTULOSE
  5. VALACYCLOVIR HYDROCHLORIDE. [Concomitant]
     Active Substance: VALACYCLOVIR HYDROCHLORIDE
  6. ESTARYLLA [Concomitant]
     Active Substance: ETHINYL ESTRADIOL\NORGESTIMATE
  7. LIDOCAINE (+) PRILOCAINE [Concomitant]
  8. ACETAMINOPHEN. [Concomitant]
     Active Substance: ACETAMINOPHEN
  9. INTRON A [Suspect]
     Active Substance: INTERFERON ALFA-2B
     Indication: HEPATIC CANCER
     Dosage: 0.9 MILLILITER (5.4 MU), DAILY ON DAYS 1, 3, 5 AND 7
     Route: 058
  10. ESTRADIOL. [Concomitant]
     Active Substance: ESTRADIOL
     Route: 048
  11. GABAPENTIN. [Concomitant]
     Active Substance: GABAPENTIN

REACTIONS (1)
  - Death [Fatal]

NARRATIVE: CASE EVENT DATE: 20190301
